FAERS Safety Report 5863951-7 (Version None)
Quarter: 2008Q3

REPORT INFORMATION
  Report Type: 
  Country: None (occurrence: None)
  Receive Date: 20080829
  Receipt Date: 20080826
  Transmission Date: 20090109
  Serious: Yes (Other)
  Sender: FDA-Public Use
  Company Number: GB-BRISTOL-MYERS SQUIBB COMPANY-14212864

PATIENT
  Age: 75 Year
  Sex: Female

DRUGS (3)
  1. ABILIFY [Suspect]
     Indication: SCHIZOPHRENIA
     Dosage: ABT 6 WKS ON 15MG DAILY.13MAR-14APR08.INCRSD TO 20MG:15APR-25APR08.RESTORED TO 15MG/DAY ON 26APR08.
     Route: 048
     Dates: start: 20080313
  2. BENDROFLUMETHIAZIDE [Concomitant]
     Indication: HYPERTENSION
     Dates: start: 20010101
  3. DILTIAZEM [Concomitant]
     Indication: MYOCARDIAL ISCHAEMIA
     Dates: start: 20010101

REACTIONS (4)
  - DRUG INEFFECTIVE [None]
  - MEDICATION ERROR [None]
  - OVERDOSE [None]
  - PSYCHOTIC DISORDER [None]
